FAERS Safety Report 10059887 (Version 1)
Quarter: 2014Q2

REPORT INFORMATION
  Report Type: Spontaneous
  Country: US (occurrence: US)
  Receive Date: 20140404
  Receipt Date: 20140404
  Transmission Date: 20141212
  Serious: Yes (Death, Hospitalization)
  Sender: FDA-Public Use
  Company Number: US-GLAXOSMITHKLINE-A1067294A

PATIENT
  Age: 54 Year
  Sex: Male

DRUGS (10)
  1. ARIXTRA [Suspect]
     Indication: ANTICOAGULANT THERAPY
     Dosage: 7.5MG PER DAY
     Route: 065
     Dates: start: 201311, end: 20140307
  2. FOLIC ACID [Concomitant]
  3. LORAZEPAM [Concomitant]
  4. COMPAZINE [Concomitant]
  5. PRILOSEC [Concomitant]
  6. ATORVASTATIN [Concomitant]
  7. CYCLOBENZAPRINE [Concomitant]
  8. OXYCODONE [Concomitant]
  9. POTASSIUM CL [Concomitant]
  10. METHADONE [Concomitant]

REACTIONS (1)
  - Lung adenocarcinoma [Fatal]
